FAERS Safety Report 18681376 (Version 1)
Quarter: 2020Q4

REPORT INFORMATION
  Report Type: Spontaneous
  Country: US (occurrence: US)
  Receive Date: 20201229
  Receipt Date: 20201229
  Transmission Date: 20210114
  Serious: Yes (Hospitalization)
  Sender: FDA-Public Use
  Company Number: None

PATIENT
  Age: 47 Year
  Sex: Female

DRUGS (17)
  1. LEVOFLOXACIN. [Concomitant]
     Active Substance: LEVOFLOXACIN
  2. ALPRAZOLAM. [Concomitant]
     Active Substance: ALPRAZOLAM
  3. CEFDINIR. [Concomitant]
     Active Substance: CEFDINIR
  4. DICLOFENAC GEL [Concomitant]
     Active Substance: DICLOFENAC
  5. METHENAM HIP [Concomitant]
  6. FLUTICASONE. [Concomitant]
     Active Substance: FLUTICASONE
  7. HYDROCO/APAP [Concomitant]
     Active Substance: ACETAMINOPHEN\HYDROCODONE
  8. METHOCARBAM [Concomitant]
     Active Substance: METHOCARBAMOL
  9. HUMIRA [Suspect]
     Active Substance: ADALIMUMAB
     Indication: ANKYLOSING SPONDYLITIS
     Dosage: ?          OTHER FREQUENCY:EVERY 2 WEEKS;?
     Route: 058
     Dates: start: 20201118
  10. ONDANSETRON [Concomitant]
     Active Substance: ONDANSETRON
  11. ALBUTEROL. [Concomitant]
     Active Substance: ALBUTEROL
  12. AMOX/K CLAV [Concomitant]
     Active Substance: AMOXICILLIN\CLAVULANATE POTASSIUM
  13. PANTOPRAZOLE [Concomitant]
     Active Substance: PANTOPRAZOLE
  14. RIZATRIPTAN. [Concomitant]
     Active Substance: RIZATRIPTAN
  15. NYSTATIN. [Concomitant]
     Active Substance: NYSTATIN
  16. BENZONATATE. [Concomitant]
     Active Substance: BENZONATATE
  17. XIIDRA [Concomitant]
     Active Substance: LIFITEGRAST

REACTIONS (3)
  - Pneumonia [None]
  - Sepsis [None]
  - Kidney infection [None]

NARRATIVE: CASE EVENT DATE: 20201228
